FAERS Safety Report 11055967 (Version 1)
Quarter: 2015Q2

REPORT INFORMATION
  Report Type: Spontaneous
  Country: RU (occurrence: RU)
  Receive Date: 20150422
  Receipt Date: 20150422
  Transmission Date: 20150821
  Serious: Yes (Disabling)
  Sender: FDA-Public Use
  Company Number: RU-TEVA-555731ISR

PATIENT
  Age: 26 Year
  Sex: Female

DRUGS (3)
  1. FINLEPSIN RETARD [Suspect]
     Active Substance: CARBAMAZEPINE
     Route: 065
  2. FINLEPSIN [Suspect]
     Active Substance: CARBAMAZEPINE
     Route: 048
  3. FINLEPSIN [Suspect]
     Active Substance: CARBAMAZEPINE
     Route: 048

REACTIONS (2)
  - Product substitution issue [Unknown]
  - Generalised tonic-clonic seizure [Recovering/Resolving]
